FAERS Safety Report 23785086 (Version 1)
Quarter: 2024Q2

REPORT INFORMATION
  Report Type: Spontaneous
  Country: US (occurrence: US)
  Receive Date: 20240425
  Receipt Date: 20240425
  Transmission Date: 20240716
  Serious: No
  Sender: FDA-Public Use
  Company Number: US-MYLANLABS-2024M1035925

PATIENT
  Age: 60 Year
  Sex: Female
  Weight: 65.77 kg

DRUGS (3)
  1. TYRVAYA [Suspect]
     Active Substance: VARENICLINE TARTRATE
     Indication: Dry eye
     Dosage: UNK, BID (SPRAY FOR BOTH NOSTRILS TWICE A DAY)
     Route: 045
     Dates: start: 20240412, end: 20240414
  2. TYRVAYA [Suspect]
     Active Substance: VARENICLINE TARTRATE
     Dosage: UNK, BID(SPRAY FOR BOTH NOSTRILS TWICE A DAY)
     Route: 045
     Dates: start: 20240417
  3. SYNTHROID [Concomitant]
     Active Substance: LEVOTHYROXINE SODIUM
     Indication: Thyroid disorder
     Dosage: UNK
     Route: 065

REACTIONS (5)
  - Hypoaesthesia oral [Recovered/Resolved]
  - Dysarthria [Recovered/Resolved]
  - Head discomfort [Recovered/Resolved]
  - Nasal discomfort [Recovered/Resolved]
  - Ocular discomfort [Recovered/Resolved]

NARRATIVE: CASE EVENT DATE: 20240412
